FAERS Safety Report 16807978 (Version 1)
Quarter: 2019Q3

REPORT INFORMATION
  Report Type: Report from Study
  Country: None (occurrence: CA)
  Receive Date: 20190915
  Receipt Date: 20190915
  Transmission Date: 20191005
  Serious: Yes (Hospitalization)
  Sender: FDA-Public Use
  Company Number: CA-ABBVIE-19K-028-2924783-00

PATIENT
  Age: 69 Year
  Sex: Male
  Weight: 99.88 kg

DRUGS (1)
  1. LUPRON [Suspect]
     Active Substance: LEUPROLIDE ACETATE
     Indication: PROSTATE CANCER
     Route: 058

REACTIONS (2)
  - Anorectal operation [Recovering/Resolving]
  - Ileostomy [Recovering/Resolving]

NARRATIVE: CASE EVENT DATE: 20190825
